FAERS Safety Report 20660463 (Version 1)
Quarter: 2022Q1

REPORT INFORMATION
  Report Type: Spontaneous
  Country: NI (occurrence: NI)
  Receive Date: 20220331
  Receipt Date: 20220331
  Transmission Date: 20220423
  Serious: Yes (Other)
  Sender: FDA-Public Use
  Company Number: NI-AMERICAN REGENT INC-2022000875

PATIENT
  Age: 80 Year
  Sex: Female

DRUGS (1)
  1. FERINJECT [Suspect]
     Active Substance: FERRIC CARBOXYMALTOSE
     Indication: Product used for unknown indication
     Dosage: UNK

REACTIONS (2)
  - Seizure [Unknown]
  - Dizziness [Unknown]

NARRATIVE: CASE EVENT DATE: 20220101
